FAERS Safety Report 25073530 (Version 1)
Quarter: 2025Q1

REPORT INFORMATION
  Report Type: Spontaneous
  Country: JP (occurrence: JP)
  Receive Date: 20250313
  Receipt Date: 20250313
  Transmission Date: 20250409
  Serious: Yes (Death, Hospitalization, Other)
  Sender: AZURITY PHARMACEUTICALS
  Company Number: JP-AZURITY PHARMACEUTICALS, INC.-AZR202502-000700

PATIENT
  Age: 83 Year
  Sex: Male

DRUGS (1)
  1. METHOTREXATE [Suspect]
     Active Substance: METHOTREXATE
     Indication: Rheumatoid arthritis
     Dosage: 8 MILLIGRAM, EVERY WEEK
     Route: 065

REACTIONS (7)
  - Shock haemorrhagic [Fatal]
  - Gastrointestinal haemorrhage [Fatal]
  - Cardiac arrest [Fatal]
  - Jaundice cholestatic [Recovered/Resolved]
  - Biliary fistula [Unknown]
  - Lymphoproliferative disorder [Unknown]
  - Hodgkin^s disease [Unknown]
